FAERS Safety Report 24587014 (Version 4)
Quarter: 2025Q1

REPORT INFORMATION
  Report Type: Spontaneous
  Country: MY (occurrence: MY)
  Receive Date: 20241107
  Receipt Date: 20250130
  Transmission Date: 20250408
  Serious: Yes (Hospitalization)
  Sender: JOHNSON AND JOHNSON
  Company Number: MY-JNJFOC-20241084470

PATIENT
  Age: 50 Year
  Sex: Female

DRUGS (18)
  1. INVEGA TRINZA [Suspect]
     Active Substance: PALIPERIDONE PALMITATE
     Indication: Schizoaffective disorder
     Route: 030
     Dates: start: 20231121
  2. INVEGA TRINZA [Suspect]
     Active Substance: PALIPERIDONE PALMITATE
     Route: 030
     Dates: start: 20230829
  3. INVEGA TRINZA [Suspect]
     Active Substance: PALIPERIDONE PALMITATE
     Route: 030
     Dates: start: 20240213
  4. INVEGA TRINZA [Suspect]
     Active Substance: PALIPERIDONE PALMITATE
     Route: 030
     Dates: start: 20240511
  5. INVEGA TRINZA [Suspect]
     Active Substance: PALIPERIDONE PALMITATE
     Route: 030
     Dates: start: 20240809
  6. INVEGA TRINZA [Suspect]
     Active Substance: PALIPERIDONE PALMITATE
     Route: 030
     Dates: start: 20241101
  7. QUETIAPINE [Concomitant]
     Active Substance: QUETIAPINE
  8. QUETIAPINE [Concomitant]
     Active Substance: QUETIAPINE
  9. ARTEMETHER [Concomitant]
     Active Substance: ARTEMETHER
  10. DIAZEPAM [Concomitant]
     Active Substance: DIAZEPAM
  11. NEUROBION FORTE [Concomitant]
     Active Substance: CYANOCOBALAMIN\PYRIDOXINE HYDROCHLORIDE\THIAMINE DISULFIDE
  12. ATORVASTATIN CALCIUM [Concomitant]
     Active Substance: ATORVASTATIN CALCIUM
  13. PERINDOPRIL [Concomitant]
     Active Substance: PERINDOPRIL
  14. BISOPROLOL [Concomitant]
     Active Substance: BISOPROLOL
  15. EPILIM [Concomitant]
     Active Substance: VALPROATE SODIUM
  16. FLUTICASONE [Concomitant]
     Active Substance: FLUTICASONE
  17. MONTELUKAST [Concomitant]
     Active Substance: MONTELUKAST
  18. ALBUTEROL [Concomitant]
     Active Substance: ALBUTEROL

REACTIONS (3)
  - Malaise [Recovering/Resolving]
  - Schizophrenia [Unknown]
  - Hospitalisation [Unknown]

NARRATIVE: CASE EVENT DATE: 20240120
